FAERS Safety Report 15615745 (Version 1)
Quarter: 2018Q4

REPORT INFORMATION
  Report Type: Report from Study
  Country: US (occurrence: US)
  Receive Date: 20181114
  Receipt Date: 20181114
  Transmission Date: 20190205
  Serious: Yes (Hospitalization, Other)
  Sender: FDA-Public Use
  Company Number: US-AMGEN INC.-USASL2018159736

PATIENT
  Sex: Female

DRUGS (3)
  1. AIMOVIG [Suspect]
     Active Substance: ERENUMAB-AOOE
     Indication: MIGRAINE
     Dosage: 140 MG, QMO
     Route: 058
     Dates: start: 20181003
  2. RELPAX [Concomitant]
     Active Substance: ELETRIPTAN HYDROBROMIDE
     Indication: MIGRAINE
     Dosage: UNK
  3. RELPAX [Concomitant]
     Active Substance: ELETRIPTAN HYDROBROMIDE
     Indication: MIGRAINE

REACTIONS (16)
  - Emotional distress [Unknown]
  - Dehydration [Unknown]
  - Neck pain [Unknown]
  - Tinnitus [Unknown]
  - Insomnia [Unknown]
  - Constipation [Unknown]
  - Suicidal ideation [Unknown]
  - Palpitations [Unknown]
  - Vomiting [Unknown]
  - Fatigue [Unknown]
  - Hyperhidrosis [Unknown]
  - Nausea [Unknown]
  - Feeling jittery [Unknown]
  - Vertigo [Unknown]
  - Lethargy [Unknown]
  - Influenza like illness [Unknown]

NARRATIVE: CASE EVENT DATE: 20181007
